FAERS Safety Report 5507738-3 (Version None)
Quarter: 2007Q4

REPORT INFORMATION
  Report Type: 
  Country: None (occurrence: None)
  Receive Date: 20071106
  Receipt Date: 20071031
  Transmission Date: 20080405
  Serious: Yes (Other)
  Sender: FDA-Public Use
  Company Number: US-ASTRAZENECA-2007UW25421

PATIENT
  Sex: Female

DRUGS (2)
  1. LISINOPRIL [Suspect]
     Indication: HYPERTENSION
     Route: 048
     Dates: start: 20070901
  2. ZESTRIL [Concomitant]
     Indication: HYPERTENSION
     Dates: start: 20010101, end: 20070101

REACTIONS (2)
  - BLOOD PRESSURE INCREASED [None]
  - MUSCLE SPASMS [None]
